FAERS Safety Report 18782839 (Version 2)
Quarter: 2022Q1

REPORT INFORMATION
  Report Type: Spontaneous
  Country: US (occurrence: US)
  Receive Date: 20210125
  Receipt Date: 20220303
  Transmission Date: 20220423
  Serious: No
  Sender: FDA-Public Use
  Company Number: US-ALLERGAN-2048713US

PATIENT
  Sex: Male

DRUGS (1)
  1. RESTASIS [Suspect]
     Active Substance: CYCLOSPORINE
     Indication: Dry eye
     Dosage: ACTUAL:PRESCRIBED 1 GTT OU BID BUT HE APPLIED 1 GTT OU QD
     Route: 047

REACTIONS (3)
  - Intentional product misuse [Unknown]
  - Vision blurred [Recovered/Resolved]
  - Drug ineffective [Unknown]
